FAERS Safety Report 4471541-6 (Version None)
Quarter: 2004Q4

REPORT INFORMATION
  Report Type: 
  Country: None (occurrence: None)
  Receive Date: 20041012
  Receipt Date: 20040123
  Transmission Date: 20050328
  Serious: Yes (Congenital Anomaly, Other)
  Sender: FDA-Public Use
  Company Number: FR-ABBOTT-04P-056-0248834-00

PATIENT
  Age: 0 Day
  Sex: Female
  Weight: 3.4 kg

DRUGS (2)
  1. DEPAKENE [Suspect]
     Indication: DRUG EXPOSURE DURING PREGNANCY
     Route: 064
     Dates: end: 20031201
  2. HEPARIN-FRACTION, CALCIUM SALT [Suspect]
     Indication: DRUG EXPOSURE DURING PREGNANCY
     Route: 064
     Dates: start: 20030925, end: 20040112

REACTIONS (12)
  - ASCITES [None]
  - BRADYCARDIA [None]
  - CAESAREAN SECTION [None]
  - CARDIAC ANEURYSM [None]
  - CONGENITAL ATRIAL SEPTAL DEFECT [None]
  - DRUG EXPOSURE DURING PREGNANCY [None]
  - EXTRASYSTOLES [None]
  - FOETAL ARRHYTHMIA [None]
  - HEART DISEASE CONGENITAL [None]
  - HEPATOSPLENOMEGALY [None]
  - NEONATAL RESPIRATORY DISTRESS SYNDROME [None]
  - RESPIRATORY DISTRESS [None]
